FAERS Safety Report 21765451 (Version 1)
Quarter: 2022Q4

REPORT INFORMATION
  Report Type: Spontaneous
  Country: US (occurrence: US)
  Receive Date: 20221222
  Receipt Date: 20221222
  Transmission Date: 20230112
  Serious: No
  Sender: FDA-Public Use
  Company Number: US-BION-010243

PATIENT
  Age: 47 Year
  Sex: Female
  Weight: 72.57 kg

DRUGS (1)
  1. ETHOSUXIMIDE [Suspect]
     Active Substance: ETHOSUXIMIDE
     Indication: Petit mal epilepsy
     Dosage: STRENGTH: 250MG, 250MG THREE TIMES DAILY

REACTIONS (1)
  - Incorrect product administration duration [Not Recovered/Not Resolved]
